FAERS Safety Report 16054036 (Version 6)
Quarter: 2019Q3

REPORT INFORMATION
  Report Type: Spontaneous
  Country: JP (occurrence: JP)
  Receive Date: 20190308
  Receipt Date: 20190808
  Transmission Date: 20191004
  Serious: Yes (Other)
  Sender: FDA-Public Use
  Company Number: PHJP2019JP002771

PATIENT

DRUGS (7)
  1. YOKUKANSAN [Concomitant]
     Active Substance: HERBALS
     Indication: PRODUCT USED FOR UNKNOWN INDICATION
     Dosage: UNK
     Route: 048
     Dates: start: 20181025
  2. CLOMIPRAMINE [Concomitant]
     Active Substance: CLOMIPRAMINE
     Indication: PRODUCT USED FOR UNKNOWN INDICATION
     Dosage: 10 MG, QID
     Route: 048
  3. LYRICA [Concomitant]
     Active Substance: PREGABALIN
     Indication: PRODUCT USED FOR UNKNOWN INDICATION
     Dosage: 50 MG, UNK
     Route: 048
  4. LUNESTA [Concomitant]
     Active Substance: ESZOPICLONE
     Indication: PRODUCT USED FOR UNKNOWN INDICATION
     Dosage: 3 MG, UNK
     Route: 048
  5. MYSLEE [Concomitant]
     Active Substance: ZOLPIDEM TARTRATE
     Indication: PRODUCT USED FOR UNKNOWN INDICATION
     Dosage: 10 MG, UNK
     Route: 048
  6. PAXIL [Concomitant]
     Active Substance: PAROXETINE HYDROCHLORIDE
     Indication: PRODUCT USED FOR UNKNOWN INDICATION
     Dosage: UNK
     Route: 048
     Dates: end: 20181008
  7. RITALIN [Suspect]
     Active Substance: METHYLPHENIDATE HYDROCHLORIDE
     Indication: PRODUCT USED FOR UNKNOWN INDICATION
     Dosage: 10 MG, BID (NOON AND NIGHT)
     Route: 048

REACTIONS (20)
  - Dry throat [Unknown]
  - Hyperacusis [Unknown]
  - Peripheral coldness [Unknown]
  - Hernia [Unknown]
  - Irritability [Unknown]
  - Musculoskeletal pain [Unknown]
  - Neck pain [Unknown]
  - Increased appetite [Unknown]
  - Language disorder [Unknown]
  - Memory impairment [Unknown]
  - Hypoaesthesia [Unknown]
  - Back pain [Unknown]
  - Middle insomnia [Unknown]
  - Restlessness [Unknown]
  - Pyrexia [Unknown]
  - Mental impairment [Unknown]
  - Tinnitus [Unknown]
  - Disturbance in attention [Unknown]
  - Arthralgia [Unknown]
  - Nightmare [Unknown]
